FAERS Safety Report 4892673-4 (Version None)
Quarter: 2006Q1

REPORT INFORMATION
  Report Type: 
  Country: None (occurrence: None)
  Receive Date: 20060126
  Receipt Date: 20051003
  Transmission Date: 20060701
  Serious: Yes (Hospitalization)
  Sender: FDA-Public Use
  Company Number: DE-SANOFI-SYNTHELABO-F01200502018

PATIENT
  Sex: Female

DRUGS (7)
  1. OXALIPLATIN [Suspect]
     Indication: COLON CANCER
     Route: 042
  2. CAPECITABINE [Suspect]
     Route: 048
  3. BEVACIZUMAB [Suspect]
     Route: 042
  4. RANITIDINE [Concomitant]
     Dates: start: 20050808
  5. CLEMASTINE [Concomitant]
     Dates: start: 20050808
  6. GRANISETRON [Concomitant]
     Dates: start: 20050808
  7. DEXAMETHASONE TAB [Concomitant]
     Dates: start: 20050808

REACTIONS (1)
  - HERPES ZOSTER DISSEMINATED [None]
